FAERS Safety Report 25708777 (Version 4)
Quarter: 2025Q4

REPORT INFORMATION
  Report Type: Spontaneous
  Country: IN (occurrence: IN)
  Receive Date: 20250821
  Receipt Date: 20251203
  Transmission Date: 20260119
  Serious: Yes (Hospitalization)
  Sender: IPSEN BIOPHARMACEUTICALS, INC.
  Company Number: IN-I.R.I.S.-S25011886

PATIENT
  Age: 67 Year
  Sex: Male

DRUGS (4)
  1. ONIVYDE [Suspect]
     Active Substance: IRINOTECAN HYDROCHLORIDE
     Indication: Product used for unknown indication
     Dosage: UNK
     Route: 065
  2. ONIVYDE [Suspect]
     Active Substance: IRINOTECAN HYDROCHLORIDE
     Dosage: UNK
     Route: 065
     Dates: start: 20250728, end: 20250728
  3. ONIVYDE [Suspect]
     Active Substance: IRINOTECAN HYDROCHLORIDE
     Dosage: UNK
     Route: 065
     Dates: start: 20250819, end: 20250819
  4. ONIVYDE [Suspect]
     Active Substance: IRINOTECAN HYDROCHLORIDE
     Dosage: UNK
     Route: 065
     Dates: start: 20250916, end: 20250916

REACTIONS (3)
  - Hypotension [Recovered/Resolved]
  - Asthenia [Recovered/Resolved]
  - Drug ineffective [Unknown]

NARRATIVE: CASE EVENT DATE: 20250805
